FAERS Safety Report 5950917-1 (Version None)
Quarter: 2008Q4

REPORT INFORMATION
  Report Type: 
  Country: None (occurrence: None)
  Receive Date: 20081110
  Receipt Date: 20081027
  Transmission Date: 20090506
  Serious: Yes (Hospitalization, Other)
  Sender: FDA-Public Use
  Company Number: A-NJ2008-22332

PATIENT
  Age: 67 Year
  Sex: Male
  Weight: 74.8 kg

DRUGS (9)
  1. TRACLEER [Suspect]
     Indication: PULMONARY ARTERIAL HYPERTENSION
     Dosage: 125 MG, BID, ORAL
     Route: 048
     Dates: start: 20080824, end: 20081010
  2. CELEXA [Concomitant]
  3. LASIX [Concomitant]
  4. POTASSIUM(POTASSIUM) [Concomitant]
  5. XANAX [Concomitant]
  6. TRAMADOL HCL [Concomitant]
  7. OXYCODONE HCL [Concomitant]
  8. LYRICA [Concomitant]
  9. COUMADIN [Concomitant]

REACTIONS (7)
  - ANAEMIA [None]
  - CELLULITIS [None]
  - CONDITION AGGRAVATED [None]
  - DYSPNOEA [None]
  - FATIGUE [None]
  - LEUKOPENIA [None]
  - PLATELET COUNT DECREASED [None]
